FAERS Safety Report 13379472 (Version 1)
Quarter: 2017Q1

REPORT INFORMATION
  Report Type: Spontaneous
  Country: MD (occurrence: MD)
  Receive Date: 20170328
  Receipt Date: 20170328
  Transmission Date: 20170429
  Serious: Yes (Hospitalization, Other)
  Sender: FDA-Public Use
  Company Number: MD-BRISTOL-MYERS SQUIBB COMPANY-BMS-2017-024559

PATIENT
  Age: 34 Year
  Sex: Female

DRUGS (1)
  1. WARFARIN SODIUM. [Suspect]
     Active Substance: WARFARIN SODIUM
     Indication: PRODUCT USED FOR UNKNOWN INDICATION
     Dosage: 4.5 MG, UNK
     Route: 065

REACTIONS (3)
  - Thrombectomy [Unknown]
  - Gangrene [Unknown]
  - Deep vein thrombosis [Unknown]
